FAERS Safety Report 16191203 (Version 7)
Quarter: 2019Q3

REPORT INFORMATION
  Report Type: Report from Study
  Country: US (occurrence: US)
  Receive Date: 20190412
  Receipt Date: 20190829
  Transmission Date: 20191004
  Serious: Yes (Death, Hospitalization, Other)
  Sender: FDA-Public Use
  Company Number: US-ACTELION-A-NJ2018-169545

PATIENT
  Age: 71 Year
  Sex: Male

DRUGS (3)
  1. COUMADIN [Concomitant]
     Active Substance: WARFARIN SODIUM
  2. REVATIO [Concomitant]
     Active Substance: SILDENAFIL CITRATE
  3. TRACLEER [Suspect]
     Active Substance: BOSENTAN
     Indication: PULMONARY ARTERIAL HYPERTENSION
     Dosage: 125 MG, BID
     Route: 048

REACTIONS (15)
  - Dry skin [Unknown]
  - Dizziness [Unknown]
  - Haemoglobin decreased [Unknown]
  - Haemorrhage [Unknown]
  - Syncope [Unknown]
  - Pruritus [Unknown]
  - Prostate cancer metastatic [Unknown]
  - Loss of consciousness [Unknown]
  - Dizziness postural [Unknown]
  - Death [Fatal]
  - Metastases to central nervous system [Unknown]
  - Unevaluable investigation [Unknown]
  - Fall [Unknown]
  - Cardiac failure congestive [Unknown]
  - Unevaluable event [Unknown]

NARRATIVE: CASE EVENT DATE: 201803
